FAERS Safety Report 9381348 (Version 1)
Quarter: 2013Q3

REPORT INFORMATION
  Report Type: Report from Study
  Country: US (occurrence: US)
  Receive Date: 20130703
  Receipt Date: 20130703
  Transmission Date: 20140515
  Serious: No
  Sender: FDA-Public Use
  Company Number: US-009507513-1306USA014781

PATIENT
  Sex: Female

DRUGS (6)
  1. REBETOL [Suspect]
     Indication: CHRONIC HEPATITIS C
     Dosage: 1000 MG DAILY DIVIDED DOSES
     Route: 048
     Dates: start: 20130215
  2. REBETOL [Suspect]
     Dosage: 600 MG DAILY IN DIVIDED DOSES
     Route: 048
  3. VICTRELIS [Suspect]
     Indication: CHRONIC HEPATITIS C
     Dosage: UNK
     Dates: start: 20130315
  4. TELAPREVIR [Suspect]
     Indication: CHRONIC HEPATITIS C
     Dosage: UNK
     Dates: start: 20130315
  5. PEGASYS [Suspect]
     Indication: CHRONIC HEPATITIS C
     Dosage: 180 MICROGRAM, QW
     Route: 058
     Dates: start: 20130215
  6. PEGASYS [Suspect]
     Dosage: 135 MICROGRAM, QW
     Route: 058

REACTIONS (8)
  - Fatigue [Unknown]
  - Anxiety [Unknown]
  - Depression [Unknown]
  - Nausea [Not Recovered/Not Resolved]
  - Vomiting [Unknown]
  - Platelet count decreased [Unknown]
  - Haemoglobin decreased [Unknown]
  - Anaemia [Unknown]
